FAERS Safety Report 9631823 (Version 1)
Quarter: 2013Q4

REPORT INFORMATION
  Report Type: Spontaneous
  Country: JP (occurrence: JP)
  Receive Date: 20131018
  Receipt Date: 20131018
  Transmission Date: 20140711
  Serious: Yes (Death, Hospitalization)
  Sender: FDA-Public Use
  Company Number: JP-SA-2013SA103786

PATIENT
  Age: 43 Year
  Sex: Female

DRUGS (5)
  1. DOCETAXEL [Suspect]
     Indication: MALIGNANT NEOPLASM OF UNKNOWN PRIMARY SITE
     Route: 065
     Dates: start: 201106
  2. THERAPEUTIC RADIOPHARMACEUTICALS [Concomitant]
     Indication: MALIGNANT NEOPLASM OF UNKNOWN PRIMARY SITE
     Dosage: TOTAL DOSE OF 40 GY AT 2.5 GY PER FRACTION
  3. EPOPROSTENOL [Concomitant]
     Route: 042
     Dates: start: 2005, end: 2011
  4. OXYGEN [Concomitant]
     Dates: end: 2011
  5. WARFARIN [Concomitant]
     Indication: PROPHYLAXIS
     Dates: end: 2011

REACTIONS (5)
  - Pulmonary arterial hypertension [Fatal]
  - Condition aggravated [Fatal]
  - Dyspnoea [Fatal]
  - Respiratory failure [Fatal]
  - Oxygen saturation decreased [Fatal]
